FAERS Safety Report 6914036-X (Version None)
Quarter: 2010Q3

REPORT INFORMATION
  Report Type: 
  Country: None (occurrence: None)
  Receive Date: 20100809
  Receipt Date: 20100729
  Transmission Date: 20110219
  Serious: Yes (Hospitalization)
  Sender: FDA-Public Use
  Company Number: PHHY2010JP42972

PATIENT
  Sex: Male

DRUGS (6)
  1. TEGRETOL [Suspect]
     Indication: EPILEPSY
     Dosage: 1 DF, QD
     Route: 048
     Dates: start: 20100430, end: 20100507
  2. TEGRETOL [Suspect]
     Dosage: 2 DF, BID
     Route: 048
     Dates: start: 20100508, end: 20100520
  3. TEGRETOL [Suspect]
     Dosage: 400 MG, QD
     Route: 048
     Dates: start: 20100522, end: 20100621
  4. DEPAKENE [Concomitant]
     Dosage: 200 MG, BID
     Route: 048
     Dates: start: 20100621
  5. DEPAKENE [Concomitant]
     Dosage: 100 MG, BID
     Route: 048
     Dates: start: 20100625
  6. DEPAKENE [Concomitant]
     Dosage: UNK

REACTIONS (14)
  - ALANINE AMINOTRANSFERASE INCREASED [None]
  - ASPARTATE AMINOTRANSFERASE INCREASED [None]
  - BLOOD ALKALINE PHOSPHATASE INCREASED [None]
  - BLOOD LACTATE DEHYDROGENASE INCREASED [None]
  - CHEILITIS [None]
  - DRUG ERUPTION [None]
  - HYPOPHAGIA [None]
  - OTORRHOEA [None]
  - PRURIGO [None]
  - PRURITUS [None]
  - PYREXIA [None]
  - RASH [None]
  - RASH GENERALISED [None]
  - STOMATITIS [None]
